FAERS Safety Report 4316809-9 (Version None)
Quarter: 2004Q1

REPORT INFORMATION
  Report Type: 
  Country: None (occurrence: None)
  Receive Date: 20040311
  Receipt Date: 20040226
  Transmission Date: 20041129
  Serious: Yes (Death, Hospitalization, Other)
  Sender: FDA-Public Use
  Company Number: US-SHR-03-013256

PATIENT
  Age: 68 Year
  Sex: Female
  Weight: 83.4 kg

DRUGS (11)
  1. FLUDARA [Suspect]
     Indication: NON-HODGKIN'S LYMPHOMA
     Dosage: 25 MG/M2 Q28D X 4 CYCLES, INTRAVENOUS
     Route: 042
     Dates: start: 20021118, end: 20030303
  2. RITUXAN [Concomitant]
  3. GLIPIZIDE [Concomitant]
  4. GLUCOPHAGE [Concomitant]
  5. ACTOS ^LILY^ (PIOGLITAZONE) [Concomitant]
  6. INSULIN [Concomitant]
  7. ENALAPRIL MALEATE [Concomitant]
  8. HYDROCHLOROTHIAZIDE [Concomitant]
  9. TIMOPTIC [Concomitant]
  10. ACTINAL (CYPROHEPTADINE HYDROCHLORIDE) [Concomitant]
  11. INSULIN [Concomitant]

REACTIONS (18)
  - APLASTIC ANAEMIA [None]
  - BUNDLE BRANCH BLOCK LEFT [None]
  - CANDIDA SEPSIS [None]
  - COUGH [None]
  - DYSPHAGIA [None]
  - ECCHYMOSIS [None]
  - HAEMOPTYSIS [None]
  - HYPOXIA [None]
  - INJECTION SITE HAEMORRHAGE [None]
  - ORAL CANDIDIASIS [None]
  - ORAL SOFT TISSUE DISORDER [None]
  - PANCYTOPENIA [None]
  - PETECHIAE [None]
  - PHARYNGOLARYNGEAL PAIN [None]
  - PULMONARY HAEMORRHAGE [None]
  - PYREXIA [None]
  - VENTRICULAR TACHYCARDIA [None]
  - VIRAL INFECTION [None]
